FAERS Safety Report 12911706 (Version 2)
Quarter: 2016Q4

REPORT INFORMATION
  Report Type: Spontaneous
  Country: US (occurrence: US)
  Receive Date: 20161104
  Receipt Date: 20161206
  Transmission Date: 20170207
  Serious: No
  Sender: FDA-Public Use
  Company Number: US-GLAXOSMITHKLINE-US2016162139

PATIENT
  Age: 37 Year
  Sex: Female

DRUGS (5)
  1. VITAMIN C [Concomitant]
     Active Substance: ASCORBIC ACID
  2. LAMICTAL [Suspect]
     Active Substance: LAMOTRIGINE
     Dosage: 200 MG, 1D
     Route: 048
     Dates: start: 2014
  3. LAMOTRIGINE. [Suspect]
     Active Substance: LAMOTRIGINE
     Indication: BIPOLAR DISORDER
     Route: 048
  4. OMEGA 3 [Concomitant]
     Active Substance: OMEGA-3 FATTY ACIDS
  5. LAMICTAL [Suspect]
     Active Substance: LAMOTRIGINE
     Indication: BIPOLAR DISORDER
     Dosage: UNK
     Route: 048
     Dates: start: 2014

REACTIONS (11)
  - Dysgeusia [Recovered/Resolved]
  - Hypersensitivity [Unknown]
  - Disturbance in attention [Not Recovered/Not Resolved]
  - Drug ineffective [Unknown]
  - Muscle tightness [Recovering/Resolving]
  - Headache [Recovering/Resolving]
  - Toothache [Recovered/Resolved]
  - Product quality issue [Unknown]
  - Pain [Recovering/Resolving]
  - Drug dose omission [Unknown]
  - Intentional underdose [Unknown]

NARRATIVE: CASE EVENT DATE: 20161026
